FAERS Safety Report 8882043 (Version 1)
Quarter: 2012Q4

REPORT INFORMATION
  Report Type: Report from Study
  Country: TR (occurrence: TR)
  Receive Date: 20121102
  Receipt Date: 20121102
  Transmission Date: 20130627
  Serious: Yes (Hospitalization)
  Sender: FDA-Public Use
  Company Number: TR-ROCHE-1151010

PATIENT
  Age: 60 Year
  Sex: Female

DRUGS (1)
  1. CAPECITABINE [Suspect]
     Indication: GASTRIC CANCER
     Route: 065

REACTIONS (4)
  - Liver disorder [Recovering/Resolving]
  - Skin atrophy [Recovering/Resolving]
  - Skin discolouration [Recovering/Resolving]
  - Rash [Recovering/Resolving]
